FAERS Safety Report 10712467 (Version 3)
Quarter: 2017Q3

REPORT INFORMATION
  Report Type: Report from Study
  Country: DE (occurrence: DE)
  Receive Date: 20150115
  Receipt Date: 20170809
  Transmission Date: 20171127
  Serious: Yes (Death, Hospitalization)
  Sender: FDA-Public Use
  Company Number: DE-ROCHE-1520837

PATIENT
  Age: 59 Year
  Sex: Male

DRUGS (14)
  1. AMITRIPTYLIN [Concomitant]
     Active Substance: AMITRIPTYLINE
  2. TORASEMID [Concomitant]
     Active Substance: TORSEMIDE
  3. SPIRONOLACTON [Concomitant]
     Active Substance: SPIRONOLACTONE
  4. CORDAREX (GERMANY) [Concomitant]
  5. SIOFOR [Concomitant]
     Active Substance: METFORMIN HYDROCHLORIDE
  6. PANTOZOL [Concomitant]
     Active Substance: PANTOPRAZOLE SODIUM
  7. TOCILIZUMAB. [Suspect]
     Active Substance: TOCILIZUMAB
     Indication: RHEUMATOID ARTHRITIS
     Route: 058
     Dates: start: 201406, end: 20140919
  8. ENBREL [Suspect]
     Active Substance: ETANERCEPT
     Indication: PRODUCT USED FOR UNKNOWN INDICATION
     Route: 065
     Dates: start: 201601, end: 201612
  9. SPIRIVA [Concomitant]
     Active Substance: TIOTROPIUM BROMIDE MONOHYDRATE
  10. LYRICA [Concomitant]
     Active Substance: PREGABALIN
  11. AMPHO-MORONAL [Concomitant]
     Active Substance: AMPHOTERICIN B
  12. PREDNISOLON [Concomitant]
     Active Substance: PREDNISOLONE
  13. BISOPROLOL [Concomitant]
     Active Substance: BISOPROLOL
  14. DELIX (GERMANY) [Concomitant]

REACTIONS (4)
  - Ischaemia [Unknown]
  - Sepsis [Fatal]
  - Peripheral arterial occlusive disease [Recovered/Resolved with Sequelae]
  - Muscular weakness [Not Recovered/Not Resolved]

NARRATIVE: CASE EVENT DATE: 201410
